FAERS Safety Report 9200709 (Version 2)
Quarter: 2013Q2

REPORT INFORMATION
  Report Type: Spontaneous
  Country: US (occurrence: US)
  Receive Date: 20130401
  Receipt Date: 20130523
  Transmission Date: 20140414
  Serious: Yes (Hospitalization, Other)
  Sender: FDA-Public Use
  Company Number: US-PFIZER INC-2013099079

PATIENT
  Age: 43 Year
  Sex: Female
  Weight: 61.68 kg

DRUGS (4)
  1. LYRICA [Suspect]
     Indication: EPILEPSY
     Dosage: 200 MG IN MORNING AND 300 MG AT BED TIME, 2X/DAY
     Dates: start: 2003
  2. KEPPRA [Concomitant]
     Indication: EPILEPSY
     Dosage: 1500 MG, 2X/DAY
  3. LAMICTAL [Concomitant]
     Indication: EPILEPSY
     Dosage: 100 MG, 2X/DAY
  4. SABRIL [Concomitant]
     Indication: EPILEPSY
     Dosage: 250 MG, 2X/DAY

REACTIONS (3)
  - Convulsion [Unknown]
  - Epilepsy [Unknown]
  - Grand mal convulsion [Recovered/Resolved]
